FAERS Safety Report 21853498 (Version 2)
Quarter: 2023Q1

REPORT INFORMATION
  Report Type: Report from Study
  Country: US (occurrence: US)
  Receive Date: 20230112
  Receipt Date: 20230125
  Transmission Date: 20230418
  Serious: Yes (Hospitalization, Other)
  Sender: FDA-Public Use
  Company Number: US-HORIZON THERAPEUTICS-HZN-2022-008709

PATIENT

DRUGS (5)
  1. KRYSTEXXA [Suspect]
     Active Substance: PEGLOTICASE
     Indication: Gout
     Dosage: FIRST INFUSION
     Route: 042
     Dates: start: 20180201
  2. HUMIRA [Concomitant]
     Active Substance: ADALIMUMAB
     Route: 065
  3. PREDNISONE [Concomitant]
     Active Substance: PREDNISONE
     Route: 065
  4. RITUXAN [Concomitant]
     Active Substance: RITUXIMAB
     Indication: Arthropathy
     Route: 065
  5. RITUXAN [Concomitant]
     Active Substance: RITUXIMAB
     Indication: Rheumatoid arthritis

REACTIONS (17)
  - Syncope [Unknown]
  - Ischaemic stroke [Unknown]
  - Coronary artery stenosis [Unknown]
  - Blindness unilateral [Unknown]
  - Rheumatoid arthritis [Unknown]
  - Muscular weakness [Unknown]
  - Anaemia macrocytic [Unknown]
  - COVID-19 [Unknown]
  - Arthralgia [Unknown]
  - Joint swelling [Unknown]
  - Back pain [Unknown]
  - Influenza [Unknown]
  - Gouty tophus [Unknown]
  - Hyperuricaemia [Unknown]
  - Blood creatinine increased [Unknown]
  - Glomerular filtration rate decreased [Unknown]
  - Rash [Unknown]

NARRATIVE: CASE EVENT DATE: 20211201
